FAERS Safety Report 7155971-X (Version None)
Quarter: 2010Q4

REPORT INFORMATION
  Report Type: 
  Country: None (occurrence: None)
  Receive Date: 20101214
  Receipt Date: 20101206
  Transmission Date: 20110411
  Serious: Yes (Life-Threatening, Hospitalization)
  Sender: FDA-Public Use
  Company Number: PHHY2010US82964

PATIENT
  Sex: Female
  Weight: 44 kg

DRUGS (1)
  1. EXJADE [Suspect]
     Indication: IRON OVERLOAD

REACTIONS (46)
  - ABDOMINAL PAIN [None]
  - ANAEMIA [None]
  - ARTERIAL DISORDER [None]
  - ASPIRATION [None]
  - BLOOD PRESSURE SYSTOLIC DECREASED [None]
  - CARDIAC FAILURE CONGESTIVE [None]
  - CARDIOMYOPATHY [None]
  - DIARRHOEA [None]
  - DYSPHAGIA [None]
  - EJECTION FRACTION DECREASED [None]
  - FLUID OVERLOAD [None]
  - GALLBLADDER DISORDER [None]
  - GANGRENE [None]
  - GASTROINTESTINAL DISORDER [None]
  - HEPATIC FAILURE [None]
  - HEPATOMEGALY [None]
  - HYDRONEPHROSIS [None]
  - HYPERTENSION [None]
  - HYPOPERFUSION [None]
  - HYPOTENSION [None]
  - HYPOVOLAEMIA [None]
  - ILIAC ARTERY STENOSIS [None]
  - INFLAMMATION [None]
  - ISCHAEMIC HEPATITIS [None]
  - LEG AMPUTATION [None]
  - LETHARGY [None]
  - LIVER DISORDER [None]
  - LOCALISED OEDEMA [None]
  - MAJOR DEPRESSION [None]
  - MITRAL VALVE INCOMPETENCE [None]
  - MYOCARDIAL INFARCTION [None]
  - NAUSEA [None]
  - OCCULT BLOOD POSITIVE [None]
  - OEDEMA [None]
  - PAIN [None]
  - PERIPHERAL ARTERIAL OCCLUSIVE DISEASE [None]
  - PLEURAL EFFUSION [None]
  - PYREXIA [None]
  - RENAL FAILURE ACUTE [None]
  - RENAL FAILURE CHRONIC [None]
  - SPLENIC INFARCTION [None]
  - SYSTEMIC LUPUS ERYTHEMATOSUS [None]
  - TYPE 2 DIABETES MELLITUS [None]
  - UPPER GASTROINTESTINAL HAEMORRHAGE [None]
  - URINARY TRACT INFECTION [None]
  - VOMITING [None]
